FAERS Safety Report 7007839-7 (Version None)
Quarter: 2010Q3

REPORT INFORMATION
  Report Type: 
  Country: None (occurrence: None)
  Receive Date: 20100922
  Receipt Date: 20100914
  Transmission Date: 20110219
  Serious: Yes (Other)
  Sender: FDA-Public Use
  Company Number: AU-ROCHE-726787

PATIENT
  Sex: Male
  Weight: 2.8 kg

DRUGS (1)
  1. ROFERON-A [Suspect]
     Dosage: DOSE: 3.0X10E6 U
     Route: 064

REACTIONS (2)
  - PATENT DUCTUS ARTERIOSUS [None]
  - VENTRICULAR SEPTAL DEFECT [None]
